FAERS Safety Report 5363705-4 (Version None)
Quarter: 2007Q2

REPORT INFORMATION
  Report Type: 
  Country: None (occurrence: None)
  Receive Date: 20070618
  Receipt Date: 20070618
  Transmission Date: 20071010
  Serious: Yes (Other)
  Sender: FDA-Public Use
  Company Number: None

PATIENT
  Age: 19 Year
  Sex: Female
  Weight: 80.7403 kg

DRUGS (2)
  1. IBUPROFEN [Suspect]
     Indication: MUSCULOSKELETAL PAIN
     Dosage: 600MG  4-6 HOURS  PO
     Route: 048
     Dates: start: 20070612, end: 20070612
  2. IBUPROFEN [Suspect]
     Indication: ROAD TRAFFIC ACCIDENT
     Dosage: 600MG  4-6 HOURS  PO
     Route: 048
     Dates: start: 20070612, end: 20070612

REACTIONS (3)
  - DRUG HYPERSENSITIVITY [None]
  - PRURITUS [None]
  - URTICARIA [None]
